FAERS Safety Report 4696937-9 (Version None)
Quarter: 2005Q2

REPORT INFORMATION
  Report Type: 
  Country: None (occurrence: None)
  Receive Date: 20050622
  Receipt Date: 20050522
  Transmission Date: 20051028
  Serious: Yes (Hospitalization, Other)
  Sender: FDA-Public Use
  Company Number: PHNU2005DE02045

PATIENT
  Age: 65 Year
  Sex: Male
  Weight: 79 kg

DRUGS (3)
  1. DECORTIN [Concomitant]
     Indication: IMMUNOSUPPRESSION
     Dosage: 5 MG DAILY
     Route: 048
  2. IMUREK [Concomitant]
     Indication: IMMUNOSUPPRESSION
     Dosage: 1 DF, BID
     Route: 048
  3. SANDIMMUNE [Suspect]
     Indication: HEART TRANSPLANT
     Dosage: 35 MG, BID
     Route: 048
     Dates: start: 19930101

REACTIONS (8)
  - FALL [None]
  - HIP ARTHROPLASTY [None]
  - ILIUM FRACTURE [None]
  - INCISIONAL HERNIA [None]
  - OSTEOARTHRITIS [None]
  - SURGERY [None]
  - WOUND DEHISCENCE [None]
  - WOUND SECRETION [None]
